FAERS Safety Report 5596288-4 (Version None)
Quarter: 2008Q1

REPORT INFORMATION
  Report Type: 
  Country: None (occurrence: None)
  Receive Date: 20080118
  Receipt Date: 20080111
  Transmission Date: 20080703
  Serious: Yes (Other)
  Sender: FDA-Public Use
  Company Number: US-GILEAD-2008-0014946

PATIENT
  Age: 34 Year
  Sex: Female

DRUGS (3)
  1. TRUVADA [Suspect]
     Dosage: 300MG/200MG
     Route: 048
  2. LEXIVA [Concomitant]
     Route: 048
  3. NORVIR [Concomitant]
     Route: 048

REACTIONS (1)
  - ABORTION SPONTANEOUS [None]
